FAERS Safety Report 17734208 (Version 1)
Quarter: 2020Q2

REPORT INFORMATION
  Report Type: Spontaneous
  Country: US (occurrence: US)
  Receive Date: 20200501
  Receipt Date: 20200501
  Transmission Date: 20200714
  Serious: Yes (Death)
  Sender: FDA-Public Use
  Company Number: None

PATIENT
  Sex: Female

DRUGS (4)
  1. SPIRIVA [Suspect]
     Active Substance: TIOTROPIUM BROMIDE MONOHYDRATE
     Dosage: ?          QUANTITY:1 CAPSULE(S);?
     Route: 055
  2. FLUTICASONE-SALMETEROL 250-50 [Concomitant]
  3. MONTELUKAST [Suspect]
     Active Substance: MONTELUKAST SODIUM
     Dosage: ?          QUANTITY:1 TABLET(S);?
     Route: 048
  4. ALBUTEROL HFA 90MCG INHALER [Concomitant]

REACTIONS (1)
  - Death [None]
